FAERS Safety Report 20828747 (Version 3)
Quarter: 2022Q4

REPORT INFORMATION
  Report Type: Spontaneous
  Country: US (occurrence: US)
  Receive Date: 20220513
  Receipt Date: 20221114
  Transmission Date: 20230113
  Serious: No
  Sender: FDA-Public Use
  Company Number: US-SA-SAC20220509001147

PATIENT
  Age: 56 Year
  Sex: Male

DRUGS (2)
  1. CAPRELSA [Suspect]
     Active Substance: VANDETANIB
     Indication: Thyroid cancer
     Dosage: 100 MG, QD
     Route: 048
     Dates: start: 20170502
  2. CAPRELSA [Suspect]
     Active Substance: VANDETANIB
     Dosage: 300 MG, Q3D
     Route: 048
     Dates: start: 20200420

REACTIONS (5)
  - Pain [Not Recovered/Not Resolved]
  - Neoplasm progression [Unknown]
  - Rebound effect [Unknown]
  - Arthralgia [Unknown]
  - Swelling [Unknown]
